FAERS Safety Report 25619759 (Version 2)
Quarter: 2025Q4

REPORT INFORMATION
  Report Type: Report from Study
  Country: US (occurrence: US)
  Receive Date: 20250729
  Receipt Date: 20251014
  Transmission Date: 20260117
  Serious: Yes (Other)
  Sender: ABBVIE
  Company Number: US-ABBVIE-6385239

PATIENT
  Age: 64 Year
  Sex: Female

DRUGS (2)
  1. HUMIRA [Suspect]
     Active Substance: ADALIMUMAB
     Indication: Rheumatoid arthritis
     Dosage: FORM STRENGTH: 40 MILLIGRAM, CITRATE FREE?STOPPED IN 2025?DOSE FORM : SOLUTION FOR INJECTION IN P...
     Route: 058
     Dates: start: 20250601
  2. HUMIRA [Suspect]
     Active Substance: ADALIMUMAB
     Dosage: FORM STRENGTH: 40 MILLIGRAM, CITRATE FREE?DOSE FORM : SOLUTION FOR INJECTION IN PRE-FILLED PEN
     Route: 058
     Dates: start: 2025

REACTIONS (5)
  - Coronary artery occlusion [Not Recovered/Not Resolved]
  - Device issue [Unknown]
  - Peripheral swelling [Unknown]
  - Swelling face [Unknown]
  - Facial pain [Unknown]

NARRATIVE: CASE EVENT DATE: 20250101
